FAERS Safety Report 20496577 (Version 2)
Quarter: 2022Q4

REPORT INFORMATION
  Report Type: Spontaneous
  Country: US (occurrence: US)
  Receive Date: 20220221
  Receipt Date: 20221227
  Transmission Date: 20230113
  Serious: Yes (Other)
  Sender: FDA-Public Use
  Company Number: US-PFIZER INC-2021546820

PATIENT
  Age: 79 Year
  Sex: Female

DRUGS (1)
  1. IBRANCE [Suspect]
     Active Substance: PALBOCICLIB
     Dosage: 100 MG, CYCLIC (P.O. DAILY, DAYS 1 THROUGH 21 OF 28-DAY CYCLE)
     Route: 048

REACTIONS (4)
  - Neutropenia [Unknown]
  - Tooth extraction [Unknown]
  - Asthenia [Unknown]
  - Stomatitis [Unknown]
